FAERS Safety Report 8811166 (Version 2)
Quarter: 2012Q4

REPORT INFORMATION
  Report Type: 
  Country: CA (occurrence: CA)
  Receive Date: 20120927
  Receipt Date: 20121121
  Transmission Date: 20130627
  Serious: Yes (Other)
  Sender: FDA-Public Use
  Company Number: CA-BAYER-2012-100476

PATIENT
  Sex: Female
  Weight: 104.31 kg

DRUGS (1)
  1. MAGNEVIST [Suspect]
     Indication: MRI
     Dosage: 20 ml, ONCE
     Route: 042
     Dates: start: 20120522, end: 20120522

REACTIONS (4)
  - Chest discomfort [Recovered/Resolved]
  - Muscle tightness [Recovered/Resolved]
  - Eye pruritus [None]
  - Sneezing [None]
